FAERS Safety Report 22142599 (Version 3)
Quarter: 2023Q2

REPORT INFORMATION
  Report Type: Spontaneous
  Country: US (occurrence: US)
  Receive Date: 20230327
  Receipt Date: 20230610
  Transmission Date: 20230722
  Serious: No
  Sender: FDA-Public Use
  Company Number: US-ELI_LILLY_AND_COMPANY-US202303013106

PATIENT
  Sex: Male

DRUGS (4)
  1. OLUMIANT [Suspect]
     Active Substance: BARICITINIB
     Indication: Alopecia areata
     Dosage: 2 MG, UNKNOWN
     Route: 065
     Dates: start: 202301
  2. OLUMIANT [Suspect]
     Active Substance: BARICITINIB
     Dosage: 2 MG, UNKNOWN
     Route: 065
     Dates: start: 20230227, end: 20230305
  3. OLUMIANT [Suspect]
     Active Substance: BARICITINIB
     Dosage: 2 MG, UNKNOWN
     Route: 065
     Dates: end: 20230319
  4. OLUMIANT [Suspect]
     Active Substance: BARICITINIB
     Dosage: 1 MG, UNKNOWN
     Route: 065
     Dates: end: 20230305

REACTIONS (10)
  - Malaise [Unknown]
  - Chest discomfort [Recovered/Resolved]
  - Limb discomfort [Unknown]
  - Hot flush [Unknown]
  - Chills [Unknown]
  - Hypoaesthesia [Unknown]
  - Pain [Recovered/Resolved]
  - Small fibre neuropathy [Unknown]
  - Nerve compression [Recovered/Resolved]
  - Wrong technique in product usage process [Unknown]
